FAERS Safety Report 4302959-X (Version None)
Quarter: 2004Q1

REPORT INFORMATION
  Report Type: 
  Country: None (occurrence: None)
  Receive Date: 20040223
  Receipt Date: 20040223
  Transmission Date: 20041129
  Serious: Yes (Other)
  Sender: FDA-Public Use
  Company Number: None

PATIENT
  Age: 44 Year
  Sex: Female
  Weight: 81.6475 kg

DRUGS (7)
  1. AUGMENTIN XR [Suspect]
     Indication: SINUSITIS
     Dosage: 2000 MG Q12H ORAL
     Route: 048
     Dates: start: 20040214, end: 20040219
  2. GEMFIBROZIL [Concomitant]
  3. METFORMIN [Concomitant]
  4. LITHOTHYRONINE [Concomitant]
  5. LEVOTHYROXINE SODIUM [Concomitant]
  6. ESTRADIOL [Concomitant]
  7. ASCORBIC ACID [Concomitant]

REACTIONS (2)
  - MUSCLE SPASMS [None]
  - PAIN [None]
